FAERS Safety Report 17174810 (Version 1)
Quarter: 2019Q4

REPORT INFORMATION
  Report Type: Spontaneous
  Country: US (occurrence: US)
  Receive Date: 20191218
  Receipt Date: 20191218
  Transmission Date: 20200122
  Serious: Yes (Death)
  Sender: FDA-Public Use
  Company Number: None

PATIENT
  Age: 62 Year
  Sex: Female

DRUGS (1)
  1. NORTHERA [Suspect]
     Active Substance: DROXIDOPA
     Indication: HYPOTENSION
     Dosage: ?          OTHER FREQUENCY:2 CAP TWICE DAILY;?
     Route: 048
     Dates: start: 20160411, end: 20191218

REACTIONS (1)
  - Death [None]

NARRATIVE: CASE EVENT DATE: 20191218
